FAERS Safety Report 13634880 (Version 1)
Quarter: 2017Q2

REPORT INFORMATION
  Report Type: Spontaneous
  Country: US (occurrence: US)
  Receive Date: 20170609
  Receipt Date: 20170609
  Transmission Date: 20170830
  Serious: No
  Sender: FDA-Public Use
  Company Number: US-BRISTOL-MYERS SQUIBB COMPANY-BMS-2017-049895

PATIENT
  Sex: Female
  Weight: 72.56 kg

DRUGS (1)
  1. ELIQUIS [Suspect]
     Active Substance: APIXABAN
     Indication: PRODUCT USED FOR UNKNOWN INDICATION
     Dosage: 5 MG, BID
     Route: 048

REACTIONS (7)
  - Hypoaesthesia [Unknown]
  - Agitation [Unknown]
  - Palpitations [Unknown]
  - Alopecia [Unknown]
  - Visual impairment [Unknown]
  - Nervousness [Unknown]
  - Feeling abnormal [Unknown]
